FAERS Safety Report 8249216 (Version 2)
Quarter: 2012Q4

REPORT INFORMATION
  Report Type: 
  Country: US (occurrence: US)
  Receive Date: 20111117
  Receipt Date: 20121023
  Transmission Date: 20130627
  Serious: Yes (Hospitalization)
  Sender: FDA-Public Use
  Company Number: US-BAYER-2011-108096

PATIENT
  Age: 31 Year
  Sex: Female
  Weight: 47.62 kg

DRUGS (11)
  1. YASMIN [Suspect]
     Indication: MENOPAUSAL SYMPTOMS
     Dosage: UNK
     Route: 048
     Dates: start: 2005, end: 2007
  2. YASMIN [Suspect]
     Indication: PELVIC PAIN
  3. LIPITOR [Concomitant]
     Indication: CARDIAC DISORDER
     Dosage: 20 mg, QD
     Dates: start: 2005, end: 2010
  4. SYMBICORT [Concomitant]
     Indication: DYSPNOEA
     Dosage: UNK
     Dates: start: 2006
  5. AMBIEN [Concomitant]
     Indication: INSOMNIA
     Dosage: UNK
     Dates: start: 2006
  6. SINGULAIR [Concomitant]
     Dosage: 10 mg, HS
  7. TOPROL [Concomitant]
     Dosage: 50 mg, QD
  8. LORTAB [Concomitant]
     Indication: PAIN
     Dosage: 500mg/5mg, every 4 to 6 hours
  9. FLEXERIL [Concomitant]
     Dosage: 10 mg, TID
  10. LYRICA [Concomitant]
     Dosage: 50 mg, QD
  11. HYDROCODONE/ACETAMINOPHEN [Concomitant]

REACTIONS (5)
  - Deep vein thrombosis [Recovered/Resolved]
  - Injury [Recovered/Resolved]
  - Pain [Recovered/Resolved]
  - Anxiety [None]
  - Depression [None]
